APPROVED DRUG PRODUCT: COTELLIC
Active Ingredient: COBIMETINIB FUMARATE
Strength: EQ 20MG BASE
Dosage Form/Route: TABLET;ORAL
Application: N206192 | Product #001
Applicant: GENENTECH INC
Approved: Nov 10, 2015 | RLD: Yes | RS: Yes | Type: RX

PATENTS:
Patent 8362002 | Expires: Oct 5, 2026
Patent 10478400 | Expires: Jun 29, 2036
Patent 11087354 | Expires: Jun 22, 2034
Patent 11597699 | Expires: Oct 5, 2026
Patent 10590102 | Expires: Jun 30, 2036
Patent 11254649 | Expires: Jun 30, 2036
Patent 7803839 | Expires: Nov 10, 2029
Patent 8362002*PED | Expires: Apr 5, 2027
Patent 7803839*PED | Expires: May 10, 2030
Patent 11254649*PED | Expires: Dec 30, 2036
Patent 10478400*PED | Expires: Dec 29, 2036
Patent 10590102*PED | Expires: Dec 30, 2036
Patent 11087354*PED | Expires: Dec 22, 2034

EXCLUSIVITY:
Code: M-278 | Date: Jul 28, 2025
Code: ODE-416 | Date: Oct 28, 2029
Code: PED | Date: Jan 28, 2026